FAERS Safety Report 22332850 (Version 2)
Quarter: 2023Q2

REPORT INFORMATION
  Report Type: Spontaneous
  Country: DE (occurrence: DE)
  Receive Date: 20230517
  Receipt Date: 20230530
  Transmission Date: 20230722
  Serious: Yes (Hospitalization, Other)
  Sender: FDA-Public Use
  Company Number: DE-BAYER-2023A068831

PATIENT
  Age: 72 Year
  Sex: Male

DRUGS (2)
  1. ULTRAVIST [Suspect]
     Active Substance: IOPROMIDE
     Indication: Computerised tomogram head
     Dosage: 100 ML, ONCE
     Route: 042
     Dates: start: 20180529, end: 20180529
  2. ULTRAVIST [Suspect]
     Active Substance: IOPROMIDE
     Indication: Cerebrovascular accident

REACTIONS (2)
  - Cerebrovascular accident [Recovering/Resolving]
  - Motor dysfunction [Recovering/Resolving]

NARRATIVE: CASE EVENT DATE: 20180530
